FAERS Safety Report 8601229-9 (Version None)
Quarter: 2012Q3

REPORT INFORMATION
  Report Type: 
  Country: None (occurrence: None)
  Receive Date: 20120817
  Receipt Date: 20120813
  Transmission Date: 20120928
  Serious: Yes (Death, Hospitalization)
  Sender: FDA-Public Use
  Company Number: PHEH2012US014741

PATIENT
  Sex: Female

DRUGS (24)
  1. DARBEPOETIN ALFA [Concomitant]
     Dosage: 200 UG, QW
  2. HEPARIN [Concomitant]
     Dosage: 5000 U, BID
     Route: 058
  3. ATROVENT [Concomitant]
  4. METOPROLOL TARTRATE [Concomitant]
     Dosage: 50 MG, Q6H
  5. LASIX [Concomitant]
     Dosage: 80 MG, Q8H
  6. ZYVOX [Concomitant]
     Dosage: 600 MG, BID
     Route: 042
  7. IMODIUM [Concomitant]
  8. ACYCLOVIR [Concomitant]
     Dosage: 650 MG, QD
     Route: 042
  9. CEFEPIME [Concomitant]
     Dosage: 2 G, BID
     Route: 042
  10. NEORAL [Suspect]
     Indication: LIVER TRANSPLANT
     Dosage: 1 DF, QD
  11. ALLOPURINOL [Concomitant]
     Indication: GOUT
     Dosage: 200 MG, DAILY
  12. BUMEX [Concomitant]
  13. ALBUTEROL [Concomitant]
  14. AMLODIPINE [Concomitant]
     Dosage: 10 MG, DAILY
  15. MICAFUNGIN [Concomitant]
  16. GABAPENTIN [Concomitant]
  17. ENTECAVIR [Concomitant]
     Indication: HEPATITIS B
     Dosage: 1 MG, Q72H
  18. PREDNISOLONE [Concomitant]
     Dosage: 10 MG, DAILY
  19. PANTOPRAZOLE [Concomitant]
  20. INSULIN [Concomitant]
  21. MORPHINE [Concomitant]
  22. PREDNISOLONE [Concomitant]
     Route: 047
  23. UREA [Concomitant]
     Dosage: 10 G, Q8H
  24. LOVENOX [Concomitant]
     Route: 058

REACTIONS (34)
  - MULTI-ORGAN FAILURE [None]
  - PNEUMONIA HERPES VIRAL [None]
  - MALNUTRITION [None]
  - CONFUSIONAL STATE [None]
  - MENTAL IMPAIRMENT [None]
  - HYPONATRAEMIA [None]
  - ACUTE RESPIRATORY FAILURE [None]
  - SEPSIS SYNDROME [None]
  - PULMONARY OEDEMA [None]
  - UNRESPONSIVE TO STIMULI [None]
  - HERPES SIMPLEX [None]
  - DYSPNOEA [None]
  - SINUSITIS [None]
  - PNEUMONIA ASPIRATION [None]
  - CARDIAC FAILURE CONGESTIVE [None]
  - SOMNOLENCE [None]
  - OEDEMA PERIPHERAL [None]
  - PULMONARY HYPERTENSION [None]
  - HEARING IMPAIRED [None]
  - CONVULSION [None]
  - FUNGAL INFECTION [None]
  - PNEUMONIA FUNGAL [None]
  - DEPRESSED LEVEL OF CONSCIOUSNESS [None]
  - APNOEA [None]
  - CYTOMEGALOVIRUS INFECTION [None]
  - METABOLIC ACIDOSIS [None]
  - METABOLIC ENCEPHALOPATHY [None]
  - GASTROINTESTINAL HAEMORRHAGE [None]
  - VENTRICULAR TACHYCARDIA [None]
  - ASTHENIA [None]
  - RENAL FAILURE ACUTE [None]
  - BRACHIOCEPHALIC VEIN STENOSIS [None]
  - WOUND [None]
  - CYTOMEGALOVIRUS GASTRITIS [None]
